FAERS Safety Report 5292071-8 (Version None)
Quarter: 2007Q2

REPORT INFORMATION
  Report Type: 
  Country: None (occurrence: None)
  Receive Date: 20070410
  Receipt Date: 20070329
  Transmission Date: 20071010
  Serious: Yes (Hospitalization)
  Sender: FDA-Public Use
  Company Number: GBWYE862902MAR07

PATIENT
  Age: 62 Year
  Sex: Male

DRUGS (8)
  1. EFFEXOR XR [Suspect]
     Indication: DEPRESSION
     Dosage: 150 MG FREQUENCY UNKNOWN
     Route: 048
     Dates: start: 20030101
  2. EFFEXOR XR [Suspect]
     Dosage: ON DOSES UP TO 375MG
     Dates: start: 19990101, end: 20000101
  3. EFFEXOR XR [Suspect]
     Dosage: 75MG FREQUENCY UNKNOWN
  4. EFFEXOR XR [Suspect]
     Dosage: 150MG FREQUENCY UNKNOWN
  5. TEMAZEPAM [Concomitant]
     Indication: INSOMNIA
     Dosage: 20MG FREQUENCY UNKNOWN
     Dates: start: 20030101
  6. SIMVASTATIN [Concomitant]
     Dosage: 40MG FREQUENCY UNKNOWN
  7. CLOPIDOGREL [Concomitant]
     Dosage: 75MG FREQUENCY UNKNOWN
  8. BENDROFLUMETHIAZIDE [Concomitant]
     Dosage: 2.5MG FREQUENCY UNKNOWN

REACTIONS (5)
  - ARACHNOID CYST [None]
  - BUNDLE BRANCH BLOCK RIGHT [None]
  - DRUG EFFECT DECREASED [None]
  - HYPERTENSION [None]
  - TRANSIENT ISCHAEMIC ATTACK [None]
